FAERS Safety Report 4827639-3 (Version None)
Quarter: 2005Q4

REPORT INFORMATION
  Report Type: 
  Country: None (occurrence: None)
  Receive Date: 20051110
  Receipt Date: 20051025
  Transmission Date: 20060501
  Serious: Yes (Other)
  Sender: FDA-Public Use
  Company Number: 12758

PATIENT
  Age: 78 Year
  Sex: Female
  Weight: 48 kg

DRUGS (1)
  1. CALCIUM FOLINATE [Suspect]
     Indication: COLON CANCER
     Dosage: 730 MG DAILY IV
     Route: 042
     Dates: start: 20051017, end: 20051017

REACTIONS (1)
  - EXTRAVASATION [None]
